FAERS Safety Report 7994326-2 (Version None)
Quarter: 2011Q4

REPORT INFORMATION
  Report Type: 
  Country: None (occurrence: None)
  Receive Date: 20111220
  Receipt Date: 20101110
  Transmission Date: 20120403
  Serious: No
  Sender: FDA-Public Use
  Company Number: US-GLAXOSMITHKLINE-A0891835A

PATIENT
  Age: 58 Year
  Sex: Female

DRUGS (2)
  1. BENADRYL [Concomitant]
  2. SORIATANE [Suspect]
     Indication: PSORIASIS
     Dosage: 25MG PER DAY
     Route: 048
     Dates: start: 20101008, end: 20101023

REACTIONS (5)
  - RHONCHI [None]
  - PAIN [None]
  - DYSPNOEA [None]
  - SKIN EXFOLIATION [None]
  - DISCOMFORT [None]
